FAERS Safety Report 21816692 (Version 1)
Quarter: 2023Q1

REPORT INFORMATION
  Report Type: Report from Study
  Country: US (occurrence: US)
  Receive Date: 20230104
  Receipt Date: 20230104
  Transmission Date: 20230418
  Serious: No
  Sender: FDA-Public Use
  Company Number: US-ABBVIE-4226422

PATIENT
  Sex: Female

DRUGS (13)
  1. DUOPA [Suspect]
     Active Substance: CARBIDOPA\LEVODOPA
     Indication: Product used for unknown indication
     Route: 050
     Dates: start: 20200917
  2. DUOPA [Suspect]
     Active Substance: CARBIDOPA\LEVODOPA
  3. TOPROL 100 MG [Concomitant]
     Indication: Product used for unknown indication
     Route: 048
  4. VITAMIN D3 10 MG [Concomitant]
     Indication: Product used for unknown indication
     Route: 048
  5. NOURIANZ 50 MG [Concomitant]
     Indication: Product used for unknown indication
     Route: 048
  6. CELEXA 25 MG [Concomitant]
     Indication: Product used for unknown indication
     Route: 048
  7. MIDODRINE 10 MG [Concomitant]
     Indication: Product used for unknown indication
     Route: 048
  8. SEROQUEL [Concomitant]
     Active Substance: QUETIAPINE FUMARATE
     Indication: Product used for unknown indication
     Dosage: 4.63-20/ML
     Route: 048
  9. NUPLAZID 34 MG [Concomitant]
     Indication: Product used for unknown indication
     Route: 048
  10. XARELTO [Concomitant]
     Active Substance: RIVAROXABAN
     Indication: Product used for unknown indication
     Route: 048
  11. MYRBETRIQ [Concomitant]
     Active Substance: MIRABEGRON
     Indication: Product used for unknown indication
     Route: 048
  12. COLACE 15 MG [Concomitant]
     Indication: Product used for unknown indication
     Route: 048
  13. BIOTIN 10000 MG [Concomitant]
     Indication: Product used for unknown indication
     Route: 048

REACTIONS (1)
  - Dyskinesia [Unknown]
